FAERS Safety Report 9293739 (Version 3)
Quarter: 2013Q4

REPORT INFORMATION
  Report Type: Spontaneous
  Country: JP (occurrence: JP)
  Receive Date: 20130516
  Receipt Date: 20131122
  Transmission Date: 20140711
  Serious: Yes (Hospitalization, Other)
  Sender: FDA-Public Use
  Company Number: JP-BRISTOL-MYERS SQUIBB COMPANY-18901934

PATIENT
  Age: 84 Year
  Sex: Male
  Weight: 58 kg

DRUGS (4)
  1. ERBITUX SOLN FOR INF 5MG/ML [Suspect]
     Indication: LARYNGEAL CANCER
     Dosage: 600MG-16APR13-UNK?400MG-24APR13-30APR13(6DAYS)
     Route: 041
     Dates: start: 20130416, end: 20130430
  2. GASTER D [Concomitant]
     Indication: PROPHYLAXIS
     Route: 048
     Dates: start: 20130419
  3. MINOMYCIN [Concomitant]
     Indication: PROPHYLAXIS
     Route: 048
     Dates: start: 20130416, end: 20130513
  4. ELENTAL [Concomitant]
     Indication: PROPHYLAXIS
     Route: 048
     Dates: start: 20130419

REACTIONS (1)
  - Platelet count decreased [Recovered/Resolved]
